FAERS Safety Report 24086238 (Version 1)
Quarter: 2024Q3

REPORT INFORMATION
  Report Type: Spontaneous
  Country: US (occurrence: US)
  Receive Date: 20240712
  Receipt Date: 20240712
  Transmission Date: 20241017
  Serious: No
  Sender: MERCK
  Company Number: US-009507513-2407USA003202

PATIENT
  Age: 80 Year
  Sex: Male

DRUGS (2)
  1. DIFICID [Suspect]
     Active Substance: FIDAXOMICIN
     Indication: Clostridium difficile colitis
     Dosage: UNK
     Route: 048
  2. VANCOMYCIN [Concomitant]
     Active Substance: VANCOMYCIN
     Indication: Clostridium difficile colitis
     Dosage: INCOMPLETE COURSE

REACTIONS (1)
  - Treatment failure [Unknown]
